FAERS Safety Report 24699353 (Version 1)
Quarter: 2024Q4

REPORT INFORMATION
  Report Type: Spontaneous
  Country: IN (occurrence: IN)
  Receive Date: 20241205
  Receipt Date: 20241205
  Transmission Date: 20250115
  Serious: Yes (Hospitalization, Other)
  Sender: NATCO PHARMA
  Company Number: IN-NATCO-000026

PATIENT
  Age: 45 Year
  Sex: Male

DRUGS (2)
  1. DISULFIRAM [Suspect]
     Active Substance: DISULFIRAM
     Indication: Alcohol use disorder
     Route: 065
  2. DISULFIRAM [Suspect]
     Active Substance: DISULFIRAM
     Indication: Alcohol use disorder
     Route: 048

REACTIONS (5)
  - Toxic encephalopathy [Not Recovered/Not Resolved]
  - Product use issue [Unknown]
  - Seizure [Not Recovered/Not Resolved]
  - Alcohol intolerance [Not Recovered/Not Resolved]
  - Cognitive disorder [Not Recovered/Not Resolved]
